FAERS Safety Report 5059590-0 (Version None)
Quarter: 2006Q2

REPORT INFORMATION
  Report Type: 
  Country: None (occurrence: None)
  Receive Date: 20060629
  Receipt Date: 20060221
  Transmission Date: 20061013
  Serious: No
  Sender: FDA-Public Use
  Company Number: PHEH2006US02464

PATIENT
  Sex: Female

DRUGS (6)
  1. ENABLEX [Suspect]
     Indication: BLADDER DISORDER
     Dosage: 15 MG, QD, ORAL
     Route: 048
     Dates: start: 20060217
  2. VASOTEC [Concomitant]
  3. OGEN [Concomitant]
  4. ALLEGRA [Concomitant]
  5. CELEBREX [Concomitant]
  6. PROZAC [Concomitant]

REACTIONS (2)
  - DIZZINESS [None]
  - DRY MOUTH [None]
